FAERS Safety Report 4698732-3 (Version None)
Quarter: 2005Q2

REPORT INFORMATION
  Report Type: 
  Country: None (occurrence: None)
  Receive Date: 20050622
  Receipt Date: 20050606
  Transmission Date: 20051028
  Serious: Yes (Other)
  Sender: FDA-Public Use
  Company Number: 2005-DE-02114GD

PATIENT
  Age: 41 Year
  Sex: Male

DRUGS (2)
  1. TRIMETHOPRIM-SULFAMETHOXAZOLE [Suspect]
     Indication: PNEUMOCYSTIS JIROVECI PNEUMONIA
  2. PREDNISONE [Suspect]
     Indication: PNEUMOCYSTIS JIROVECI PNEUMONIA

REACTIONS (5)
  - CD4 LYMPHOCYTES DECREASED [None]
  - DERMATITIS EXFOLIATIVE [None]
  - DRUG INTOLERANCE [None]
  - PHOTODERMATOSIS [None]
  - RASH MACULO-PAPULAR [None]
